FAERS Safety Report 6662341-7 (Version None)
Quarter: 2010Q1

REPORT INFORMATION
  Report Type: 
  Country: None (occurrence: None)
  Receive Date: 20100331
  Receipt Date: 20091103
  Transmission Date: 20100710
  Serious: No
  Sender: FDA-Public Use
  Company Number: US-ABBOTT-09P-163-0606487-00

PATIENT
  Age: 54 Year
  Sex: Female

DRUGS (2)
  1. LUPRON DEPOT [Suspect]
     Indication: INFERTILITY FEMALE
     Dates: start: 19800101
  2. LUPRON DEPOT [Suspect]
     Indication: ENDOMETRIOSIS
     Dates: start: 19900101

REACTIONS (2)
  - CONTUSION [None]
  - TOOTH DISORDER [None]
